FAERS Safety Report 13952018 (Version 2)
Quarter: 2017Q3

REPORT INFORMATION
  Report Type: Spontaneous
  Country: GB (occurrence: GB)
  Receive Date: 20170910
  Receipt Date: 20170911
  Transmission Date: 20171128
  Serious: Yes (Other)
  Sender: FDA-Public Use
  Company Number: GB-MYLANLABS-2017M1054871

PATIENT
  Age: 4 Year
  Sex: Female
  Weight: 12 kg

DRUGS (8)
  1. HYOSCINE HYDROBROMIDE [Concomitant]
     Active Substance: SCOPOLAMINE
     Dosage: PATCH
     Dates: start: 20170428
  2. HYDROCORTISONE. [Concomitant]
     Active Substance: HYDROCORTISONE
     Dosage: POTENCY: MILD. ONCE OR TWICE DAILY.
     Dates: start: 20160929
  3. BACLOFEN. [Concomitant]
     Active Substance: BACLOFEN
     Dates: start: 20170406
  4. LEVETIRACETAM. [Concomitant]
     Active Substance: LEVETIRACETAM
     Dates: start: 20170711
  5. MELATONIN [Concomitant]
     Active Substance: MELATONIN
     Dosage: AT NIGHT.
     Dates: start: 20170428
  6. MIDAZOLAM [Concomitant]
     Active Substance: MIDAZOLAM HYDROCHLORIDE
     Indication: SEIZURE
     Dates: start: 20170420
  7. CARBAMAZEPINE. [Suspect]
     Active Substance: CARBAMAZEPINE
     Indication: PRODUCT USED FOR UNKNOWN INDICATION
     Dates: start: 20170420
  8. PARACETAMOL [Concomitant]
     Active Substance: ACETAMINOPHEN
     Dosage: FOR AGE 2 YEARS TO 4 YEARS.
     Dates: start: 20170524, end: 20170531

REACTIONS (2)
  - Skin exfoliation [Recovered/Resolved]
  - Rash [Unknown]

NARRATIVE: CASE EVENT DATE: 20170523
